FAERS Safety Report 20850682 (Version 1)
Quarter: 2022Q2

REPORT INFORMATION
  Report Type: Spontaneous
  Country: US (occurrence: US)
  Receive Date: 20220519
  Receipt Date: 20220519
  Transmission Date: 20220720
  Serious: Yes (Hospitalization, Other)
  Sender: FDA-Public Use
  Company Number: US-SANOFI US-2022SA172184

PATIENT
  Age: 36 Year
  Sex: Female

DRUGS (17)
  1. SERTRALINE [Suspect]
     Active Substance: SERTRALINE HYDROCHLORIDE
     Dosage: 50 MG, QD
  2. CLONAZEPAM [Suspect]
     Active Substance: CLONAZEPAM
     Indication: Mania
     Dosage: 4 MG, QD
  3. CLONAZEPAM [Suspect]
     Active Substance: CLONAZEPAM
     Dosage: UNK
  4. OLANZAPINE [Suspect]
     Active Substance: OLANZAPINE
     Indication: Mania
     Dosage: UNK
  5. PROCHLORPERAZINE [Suspect]
     Active Substance: PROCHLORPERAZINE
     Dosage: UNK
  6. PROMETHAZINE [Suspect]
     Active Substance: PROMETHAZINE HYDROCHLORIDE
     Dosage: UNK
     Route: 042
  7. SODIUM CHLORIDE [Suspect]
     Active Substance: SODIUM CHLORIDE
     Dosage: 2 L
  8. ONDANSETRON [Suspect]
     Active Substance: ONDANSETRON
     Dosage: UNK
  9. DIPHENHYDRAMINE [Suspect]
     Active Substance: DIPHENHYDRAMINE
     Dosage: UNK
  10. METOCLOPRAMIDE HYDROCHLORIDE [Suspect]
     Active Substance: METOCLOPRAMIDE HYDROCHLORIDE
     Dosage: UNK
  11. PANTOPRAZOLE [Suspect]
     Active Substance: PANTOPRAZOLE
     Dosage: UNK
  12. MAGNESIUM SULFATE [Suspect]
     Active Substance: MAGNESIUM SULFATE
     Dosage: 2 G
  13. POTASSIUM CHLORIDE [Suspect]
     Active Substance: POTASSIUM CHLORIDE
     Dosage: 10 MEQ
  14. CAFFEINE [Suspect]
     Active Substance: CAFFEINE
     Dosage: UNK
  15. BUSPIRONE [Suspect]
     Active Substance: BUSPIRONE HYDROCHLORIDE
     Dosage: 30 MG, BID
  16. LURASIDONE [Suspect]
     Active Substance: LURASIDONE
     Dosage: 80 MG, QD
  17. LURASIDONE [Suspect]
     Active Substance: LURASIDONE
     Dosage: 120 MG, QD

REACTIONS (15)
  - Serotonin syndrome [Unknown]
  - Nausea [Unknown]
  - Vomiting [Unknown]
  - Diarrhoea [Unknown]
  - Tremor [Unknown]
  - Hypertension [Unknown]
  - Ketonuria [Unknown]
  - Hypokalaemia [Unknown]
  - Metabolic acidosis [Unknown]
  - Anion gap increased [Unknown]
  - Restlessness [Unknown]
  - Anxiety [Unknown]
  - Hyperhidrosis [Unknown]
  - Hyperreflexia [Unknown]
  - Exposure during pregnancy [Unknown]
